FAERS Safety Report 23890196 (Version 2)
Quarter: 2024Q3

REPORT INFORMATION
  Report Type: Report from Study
  Country: US (occurrence: US)
  Receive Date: 20240523
  Receipt Date: 20240808
  Transmission Date: 20241016
  Serious: Yes (Hospitalization, Other)
  Sender: AURINIA PHARMACEUTICALS
  Company Number: US-OTSUKA PHARMACEUTICAL NETHERLANDS B.V.-AUR-005884

PATIENT
  Sex: Female

DRUGS (3)
  1. LUPKYNIS [Suspect]
     Active Substance: VOCLOSPORIN
     Indication: Lupus nephritis
     Dosage: 7.9 MG IN AM AND 23.7 MG IN PM
     Route: 048
     Dates: start: 20220216
  2. LUPKYNIS [Suspect]
     Active Substance: VOCLOSPORIN
     Dosage: 7.9 MG IN AM AND 23.7 MG IN PM
     Route: 048
     Dates: start: 20220216
  3. LUPKYNIS [Suspect]
     Active Substance: VOCLOSPORIN
     Dosage: 15.8 MG IN AM AND 23.7 MG IN PM
     Route: 048
     Dates: start: 20220216

REACTIONS (2)
  - Pneumonia [Unknown]
  - Fluid retention [Not Recovered/Not Resolved]
